FAERS Safety Report 8854241 (Version 1)
Quarter: 2012Q4

REPORT INFORMATION
  Report Type: Spontaneous
  Country: US (occurrence: None)
  Receive Date: 20121022
  Receipt Date: 20121022
  Transmission Date: 20130627
  Serious: Yes (Other)
  Sender: FDA-Public Use
  Company Number: None

PATIENT
  Sex: Female
  Weight: 63.2 kg

DRUGS (1)
  1. PROLIA [Suspect]
     Dosage: 1ml q 6 mos sub q 057
     Route: 058
     Dates: start: 20120928

REACTIONS (1)
  - Rash [None]
